FAERS Safety Report 4996357-3 (Version None)
Quarter: 2006Q2

REPORT INFORMATION
  Report Type: 
  Country: None (occurrence: None)
  Receive Date: 20060509
  Receipt Date: 20060502
  Transmission Date: 20061013
  Serious: Yes (Other)
  Sender: FDA-Public Use
  Company Number: US-JNJFOC-20060500684

PATIENT
  Age: 69 Year
  Sex: Female

DRUGS (2)
  1. LEVAQUIN [Suspect]
     Indication: POSTOPERATIVE INFECTION
  2. LEVAQUIN [Suspect]

REACTIONS (1)
  - RETINAL DETACHMENT [None]
